FAERS Safety Report 6170814-9 (Version None)
Quarter: 2009Q2

REPORT INFORMATION
  Report Type: 
  Country: None (occurrence: None)
  Receive Date: 20090427
  Receipt Date: 20090413
  Transmission Date: 20091009
  Serious: Yes (Hospitalization)
  Sender: FDA-Public Use
  Company Number: 1-17735068

PATIENT
  Age: 79 Year
  Sex: Female
  Weight: 68.0396 kg

DRUGS (3)
  1. FENTANYL TRANSDERMAL SYSTEM [Suspect]
     Indication: BACK PAIN
     Dosage: 100 MCG/HR, EVERY 48 HRS, TRANSDERMAL
     Route: 062
     Dates: start: 20090201, end: 20090302
  2. FENTANYL TRANSDERMAL SYSTEM [Suspect]
     Indication: INTESTINAL OPERATION
     Dosage: 100 MCG/HR, EVERY 48 HRS, TRANSDERMAL
     Route: 062
     Dates: start: 20090201, end: 20090302
  3. FENTANYL TRANSDERMAL SYSTEM [Suspect]
     Indication: PAIN
     Dosage: 100 MCG/HR, EVERY 48 HRS, TRANSDERMAL
     Route: 062
     Dates: start: 20090201, end: 20090302

REACTIONS (10)
  - ASTHENIA [None]
  - DEVICE LEAKAGE [None]
  - FATIGUE [None]
  - HYPOXIA [None]
  - LETHARGY [None]
  - MENTAL STATUS CHANGES [None]
  - OVERDOSE [None]
  - PAIN IN EXTREMITY [None]
  - SOMNOLENCE [None]
  - WHEELCHAIR USER [None]
